FAERS Safety Report 22365715 (Version 1)
Quarter: 2023Q2

REPORT INFORMATION
  Report Type: Other
  Country: RU (occurrence: None)
  Receive Date: 20230525
  Receipt Date: 20230525
  Transmission Date: 20230722
  Serious: Yes (Death, Other)
  Sender: FDA-Public Use
  Company Number: RU-ROCHE-3354014

PATIENT

DRUGS (4)
  1. RITUXIMAB [Suspect]
     Active Substance: RITUXIMAB
     Indication: Chronic lymphocytic leukaemia
     Dosage: (8 WEEKLY WITH SUBSEQUENT 4 MONTHLY INFUSIONS, IN TOTAL 12 INFUSIONS).
     Route: 042
  2. RITUXIMAB [Suspect]
     Active Substance: RITUXIMAB
     Indication: Cytopenia
     Route: 042
  3. IBRUTINIB [Suspect]
     Active Substance: IBRUTINIB
     Indication: Chronic lymphocytic leukaemia
     Route: 048
  4. IBRUTINIB [Suspect]
     Active Substance: IBRUTINIB
     Indication: Cytopenia

REACTIONS (43)
  - Septic shock [Fatal]
  - COVID-19 [Fatal]
  - Neutropenia [Unknown]
  - Arrhythmia [Unknown]
  - Infection [Unknown]
  - Neutrophil count decreased [Unknown]
  - Pneumonia [Unknown]
  - Skin infection [Unknown]
  - Paronychia [Unknown]
  - Periorbital infection [Unknown]
  - Soft tissue infection [Unknown]
  - Dyspepsia [Unknown]
  - Nausea [Unknown]
  - Muscle spasms [Unknown]
  - Arthralgia [Unknown]
  - Headache [Unknown]
  - Atrial fibrillation [Unknown]
  - Supraventricular tachycardia [Unknown]
  - Hypertension [Unknown]
  - Pyrexia [Unknown]
  - Hyperglycaemia [Unknown]
  - Rash maculo-papular [Unknown]
  - Upper respiratory tract infection [Unknown]
  - Bronchitis [Unknown]
  - Herpes simplex [Unknown]
  - Pharyngitis [Unknown]
  - Rhinitis [Unknown]
  - Urinary tract infection [Unknown]
  - Diarrhoea [Unknown]
  - Myalgia [Unknown]
  - Dizziness [Unknown]
  - Haematoma [Unknown]
  - Purpura [Unknown]
  - Epistaxis [Unknown]
  - Mouth haemorrhage [Unknown]
  - Haematuria [Unknown]
  - Insomnia [Unknown]
  - Oedema peripheral [Unknown]
  - Infusion related reaction [Unknown]
  - Rash [Unknown]
  - Impaired healing [Unknown]
  - Atrioventricular block [Unknown]
  - Sinus bradycardia [Unknown]
